FAERS Safety Report 19796981 (Version 1)
Quarter: 2021Q3

REPORT INFORMATION
  Report Type: Spontaneous
  Country: US (occurrence: US)
  Receive Date: 20210905
  Receipt Date: 20210905
  Transmission Date: 20211014
  Serious: No
  Sender: FDA-Public Use
  Company Number: None

PATIENT
  Age: 44 Year
  Sex: Male
  Weight: 198.45 kg

DRUGS (6)
  1. CLARITIN [Suspect]
     Active Substance: LORATADINE
     Indication: EYE PRURITUS
     Dosage: QUANTITY:1 TABLET(S);?
     Route: 048
     Dates: start: 20210808, end: 20210809
  2. CLARITIN [Suspect]
     Active Substance: LORATADINE
     Indication: NASAL CONGESTION
     Dosage: QUANTITY:1 TABLET(S);?
     Route: 048
     Dates: start: 20210808, end: 20210809
  3. ATORVASTATIN [Concomitant]
     Active Substance: ATORVASTATIN
  4. OZEMPIC [Concomitant]
     Active Substance: SEMAGLUTIDE
  5. ARIPIPRAZOLE. [Concomitant]
     Active Substance: ARIPIPRAZOLE
  6. LISINOPRIL. [Concomitant]
     Active Substance: LISINOPRIL

REACTIONS (1)
  - Rash [None]

NARRATIVE: CASE EVENT DATE: 20210808
